FAERS Safety Report 8154664 (Version 4)
Quarter: 2013Q3

REPORT INFORMATION
  Report Type: Spontaneous
  Country: US (occurrence: US)
  Receive Date: 20110923
  Receipt Date: 20130919
  Transmission Date: 20140515
  Serious: Yes (Hospitalization)
  Sender: FDA-Public Use
  Company Number: US-GLAXOSMITHKLINE-A0915627A

PATIENT
  Age: 68 Year
  Sex: Male
  Weight: 93.6 kg

DRUGS (1)
  1. AVANDIA [Suspect]
     Indication: DIABETES MELLITUS
     Dosage: 2MG PER DAY
     Route: 048
     Dates: start: 200204, end: 200604

REACTIONS (7)
  - Myocardial infarction [Recovering/Resolving]
  - Angina pectoris [Unknown]
  - Anaemia [Unknown]
  - Coronary artery disease [Unknown]
  - Dyspnoea [Unknown]
  - Hyperlipidaemia [Unknown]
  - Hypercholesterolaemia [Unknown]
